FAERS Safety Report 19435710 (Version 2)
Quarter: 2022Q4

REPORT INFORMATION
  Report Type: Other
  Country: FR (occurrence: FR)
  Receive Date: 20210618
  Receipt Date: 20221020
  Transmission Date: 20230113
  Serious: Yes (Hospitalization, Other)
  Sender: FDA-Public Use
  Company Number: None

PATIENT

DRUGS (14)
  1. AMOXICILLIN [Suspect]
     Active Substance: AMOXICILLIN
     Indication: Antibiotic prophylaxis
     Dosage: 3 GRAM, QD
     Route: 065
     Dates: start: 20210415, end: 20210422
  2. LANSOPRAZOLE [Suspect]
     Active Substance: LANSOPRAZOLE
     Indication: Prophylaxis against gastrointestinal ulcer
     Dosage: 30 MILLIGRAM, QD
     Route: 048
     Dates: start: 20210403
  3. CIPROFLOXACIN HYDROCHLORIDE [Suspect]
     Active Substance: CIPROFLOXACIN HYDROCHLORIDE
     Indication: Antibiotic prophylaxis
     Dosage: 400 MILLIGRAM, QD
     Route: 042
     Dates: start: 20210402, end: 20210406
  4. IOMERON [Suspect]
     Active Substance: IOMEPROL
     Indication: Computerised tomogram
     Dosage: SINGLE DOSE
     Route: 042
     Dates: start: 20210420, end: 20210420
  5. MEROPENEM ANHYDROUS [Suspect]
     Active Substance: MEROPENEM ANHYDROUS
     Indication: Antibiotic prophylaxis
     Dosage: 1 GRAM, QD
     Route: 042
     Dates: start: 20210401, end: 20210402
  6. HEPARIN SODIUM [Suspect]
     Active Substance: HEPARIN SODIUM
     Indication: Thrombosis prophylaxis
     Dosage: 6000 INTERNATIONAL UNIT, QD
     Route: 058
     Dates: start: 20210316, end: 20210414
  7. SUFENTANIL [Suspect]
     Active Substance: SUFENTANIL
     Indication: Sedation
     Dosage: 0.5 ML / HEURE
     Route: 042
     Dates: start: 20210401
  8. PROPOFOL [Suspect]
     Active Substance: PROPOFOL
     Indication: Sedation
     Dosage: 0.20 ML/HEURE
     Route: 042
     Dates: start: 20210401, end: 20210521
  9. INSULIN PORK\INSULIN PURIFIED PORK [Suspect]
     Active Substance: INSULIN PORK\INSULIN PURIFIED PORK
     Indication: Insulin therapy
     Dosage: 100 IU / ML DEPENDING ON BLOOD SUGAR
     Route: 058
     Dates: start: 20210406, end: 20210409
  10. IMIPENEM [Suspect]
     Active Substance: IMIPENEM
     Indication: Antibiotic prophylaxis
     Dosage: 2 GRAM, QD
     Route: 042
     Dates: start: 20210420, end: 20210421
  11. ERTAPENEM [Suspect]
     Active Substance: ERTAPENEM
     Indication: Antibiotic prophylaxis
     Dosage: UNK
     Route: 042
     Dates: start: 20210331, end: 20210331
  12. HEPARIN [Suspect]
     Active Substance: HEPARIN SODIUM
     Indication: Thrombosis prophylaxis
     Dosage: 6000 IU, QD
     Route: 058
     Dates: start: 20210316, end: 20210414
  13. IMIPENEM [Suspect]
     Active Substance: IMIPENEM
     Indication: Antibiotic prophylaxis
     Dosage: 2 G, QD
     Route: 042
     Dates: start: 20210420, end: 20210421
  14. MEROPENEM [Suspect]
     Active Substance: MEROPENEM
     Indication: Antibiotic prophylaxis
     Dosage: 1 G, QD
     Route: 042
     Dates: start: 20210401, end: 20210402

REACTIONS (2)
  - Drug reaction with eosinophilia and systemic symptoms [Recovering/Resolving]
  - Rash morbilliform [Recovering/Resolving]

NARRATIVE: CASE EVENT DATE: 20210406
